FAERS Safety Report 9798077 (Version 3)
Quarter: 2014Q3

REPORT INFORMATION
  Report Type: Spontaneous
  Country: US (occurrence: US)
  Receive Date: 20140106
  Receipt Date: 20140827
  Transmission Date: 20150326
  Serious: Yes (Death, Hospitalization, Other)
  Sender: FDA-Public Use
  Company Number: US-MERCK-1401USA000859

PATIENT
  Sex: Female
  Weight: 48.73 kg

DRUGS (1)
  1. JANUVIA [Suspect]
     Active Substance: SITAGLIPTIN PHOSPHATE
     Indication: TYPE 2 DIABETES MELLITUS
     Dosage: 100 MG, QD
     Route: 048
     Dates: start: 20070323, end: 20110502

REACTIONS (55)
  - Cholangitis [Unknown]
  - Cardiac failure congestive [Unknown]
  - Kyphosis [Unknown]
  - Mouth ulceration [Recovering/Resolving]
  - Dermatitis acneiform [Recovering/Resolving]
  - Pancreatic carcinoma [Fatal]
  - Fall [Unknown]
  - Aortic valve replacement [Unknown]
  - Hyperlipidaemia [Unknown]
  - Humerus fracture [Unknown]
  - Pulmonary mass [Unknown]
  - Cachexia [Unknown]
  - Renal cyst [Unknown]
  - Kyphoscoliosis [Unknown]
  - Diverticulum [Unknown]
  - Oesophagitis [Unknown]
  - Gastrooesophageal reflux disease [Unknown]
  - Gout [Unknown]
  - Abdominal pain [Unknown]
  - Gastrointestinal stoma complication [Unknown]
  - Bile duct obstruction [Unknown]
  - Pulmonary embolism [Unknown]
  - Renal failure chronic [Not Recovered/Not Resolved]
  - Ovarian cyst [Unknown]
  - Intervertebral disc degeneration [Unknown]
  - Osteoarthritis [Unknown]
  - Trigeminal neuralgia [Unknown]
  - Tooth disorder [Unknown]
  - Fluid overload [Recovering/Resolving]
  - Back pain [Unknown]
  - Mass excision [Unknown]
  - Cholecystectomy [Unknown]
  - Depression [Unknown]
  - Constipation [Not Recovered/Not Resolved]
  - Jaundice cholestatic [Unknown]
  - Face injury [Unknown]
  - Bile duct stenosis [Unknown]
  - Scoliosis [Unknown]
  - Dry mouth [Unknown]
  - Pain in extremity [Recovering/Resolving]
  - Duodenal obstruction [Unknown]
  - Device occlusion [Unknown]
  - Foot fracture [Unknown]
  - Acute prerenal failure [Unknown]
  - Vomiting [Unknown]
  - Aortic valve stenosis [Unknown]
  - Anaemia of chronic disease [Unknown]
  - Essential hypertension [Unknown]
  - Osteoarthritis [Unknown]
  - Gastrostomy [Unknown]
  - Cataract nuclear [Unknown]
  - Bile duct stent insertion [Unknown]
  - Umbilical hernia [Unknown]
  - Ecchymosis [Recovering/Resolving]
  - Asthma [Unknown]

NARRATIVE: CASE EVENT DATE: 2009
